FAERS Safety Report 15099876 (Version 2)
Quarter: 2018Q3

REPORT INFORMATION
  Report Type: Other
  Country: DE (occurrence: DE)
  Receive Date: 20180703
  Receipt Date: 20180726
  Transmission Date: 20181010
  Serious: No
  Sender: FDA-Public Use
  Company Number: DE-LUPIN PHARMACEUTICALS INC.-2018-03772

PATIENT
  Sex: Female

DRUGS (6)
  1. LAMOTRIGINE. [Suspect]
     Active Substance: LAMOTRIGINE
     Indication: PRODUCT USED FOR UNKNOWN INDICATION
     Dosage: 50 MG, BID
     Route: 065
     Dates: start: 201712
  2. LAMOTRIGINE. [Suspect]
     Active Substance: LAMOTRIGINE
     Dosage: 75 MG, BID (IN THE MORNING AND EVENING)
     Route: 065
  3. L?THYROX [Suspect]
     Active Substance: LEVOTHYROXINE SODIUM
     Indication: PRODUCT USED FOR UNKNOWN INDICATION
     Dosage: 100 MCG, (IN THE MORNING)
     Route: 065
  4. OLANZAPINE. [Suspect]
     Active Substance: OLANZAPINE
     Indication: PSYCHOTIC DISORDER
     Dosage: 10 MG, QD, (AT NIGHT)
     Route: 065
  5. METOPROLOL. [Suspect]
     Active Substance: METOPROLOL
     Indication: PRODUCT USED FOR UNKNOWN INDICATION
     Dosage: 23.75 MG, BID, (IN THE MORNING AND EVENING)
     Route: 065
  6. METOPROLOL. [Suspect]
     Active Substance: METOPROLOL
     Dosage: 11.75 MG, BID
     Route: 065

REACTIONS (6)
  - Insomnia [Recovering/Resolving]
  - Hypersomnia [Not Recovered/Not Resolved]
  - Restlessness [Recovering/Resolving]
  - Increased appetite [Not Recovered/Not Resolved]
  - Fatigue [Recovering/Resolving]
  - Sexual dysfunction [Not Recovered/Not Resolved]

NARRATIVE: CASE EVENT DATE: 201802
